FAERS Safety Report 4648557-X (Version None)
Quarter: 2005Q2

REPORT INFORMATION
  Report Type: 
  Country: None (occurrence: None)
  Receive Date: 20050429
  Receipt Date: 20050419
  Transmission Date: 20051028
  Serious: Yes (Death, Other)
  Sender: FDA-Public Use
  Company Number: US-JNJFOC-20050404736

PATIENT
  Age: 36 Year
  Sex: Female
  Weight: 83.46 kg

DRUGS (2)
  1. FENTANYL [Suspect]
     Indication: INTENTIONAL MISUSE
     Route: 065
     Dates: end: 20030305
  2. HYDROCODONE BITARTRATE [Suspect]
     Indication: INTENTIONAL MISUSE
     Dates: end: 20030305

REACTIONS (4)
  - BRONCHOPNEUMONIA [None]
  - DRUG ABUSER [None]
  - DRUG TOXICITY [None]
  - NARCOTIC INTOXICATION [None]
